FAERS Safety Report 6312680-4 (Version None)
Quarter: 2009Q3

REPORT INFORMATION
  Report Type: 
  Country: None (occurrence: None)
  Receive Date: 20090814
  Receipt Date: 20090814
  Transmission Date: 20100115
  Serious: Yes (Disabling)
  Sender: FDA-Public Use
  Company Number: None

PATIENT
  Sex: Female

DRUGS (1)
  1. BONIVA [Suspect]
     Indication: OSTEOPOROSIS
     Dosage: 3 MG EVERY 3 MONTHS IV
     Route: 042
     Dates: start: 20080220, end: 20090117

REACTIONS (2)
  - ARTHRALGIA [None]
  - BONE PAIN [None]
